FAERS Safety Report 5351600-6 (Version None)
Quarter: 2007Q2

REPORT INFORMATION
  Report Type: 
  Country: None (occurrence: None)
  Receive Date: 20070523
  Receipt Date: 20070109
  Transmission Date: 20071010
  Serious: Yes (Hospitalization)
  Sender: FDA-Public Use
  Company Number: PHEH2006US14407

PATIENT
  Age: 56 Year
  Sex: Female
  Weight: 102 kg

DRUGS (6)
  1. TEGRETOL-XR [Suspect]
     Indication: FACIAL PAIN
     Dosage: 200 MG, TID, ORAL
     Route: 047
     Dates: start: 20060919, end: 20061105
  2. LISINOPRIL [Concomitant]
  3. ZOCOR [Concomitant]
  4. CELEXA [Concomitant]
  5. LYRICA [Concomitant]
  6. TOPAMAX [Concomitant]

REACTIONS (3)
  - ANAEMIA [None]
  - ASTHENIA [None]
  - FATIGUE [None]
